FAERS Safety Report 5751329-6 (Version None)
Quarter: 2008Q2

REPORT INFORMATION
  Report Type: 
  Country: None (occurrence: None)
  Receive Date: 20080528
  Receipt Date: 20080516
  Transmission Date: 20081010
  Serious: Yes (Hospitalization)
  Sender: FDA-Public Use
  Company Number: FR-PFIZER INC-2008043126

PATIENT
  Sex: Female

DRUGS (3)
  1. NEURONTIN [Suspect]
     Indication: PHANTOM PAIN
     Route: 048
  2. LAMALINE [Suspect]
     Indication: BACK PAIN
     Route: 048
     Dates: start: 20071228, end: 20080117
  3. LOVENOX [Concomitant]
     Route: 058

REACTIONS (4)
  - ABNORMAL BEHAVIOUR [None]
  - AGGRESSION [None]
  - HALLUCINATION, VISUAL [None]
  - UNEVALUABLE EVENT [None]
